FAERS Safety Report 5339182-6 (Version None)
Quarter: 2007Q2

REPORT INFORMATION
  Report Type: 
  Country: None (occurrence: None)
  Receive Date: 20070330
  Receipt Date: 20060221
  Transmission Date: 20071010
  Serious: Yes (Hospitalization, Other)
  Sender: FDA-Public Use
  Company Number: 2006EN000072

PATIENT
  Age: 9 Year
  Sex: Female

DRUGS (8)
  1. ONCASPAR [Suspect]
     Indication: ACUTE LYMPHOCYTIC LEUKAEMIA
     Dosage: 2825 IU; IM
     Route: 030
     Dates: start: 20060216
  2. DEXAMETHASONE [Suspect]
     Indication: ACUTE LYMPHOCYTIC LEUKAEMIA
     Dosage: 3.5 MG/M**2;BID;PO
     Route: 048
     Dates: start: 20060214
  3. VINCRISTINE [Concomitant]
  4. CYTARABINE [Concomitant]
  5. ELOTEC [Concomitant]
  6. FORTAZ [Concomitant]
  7. METHOTREXATE [Concomitant]
  8. DANDELION ROOT TEA [Concomitant]

REACTIONS (1)
  - HYPERGLYCAEMIA [None]
